FAERS Safety Report 24079660 (Version 3)
Quarter: 2024Q3

REPORT INFORMATION
  Report Type: Spontaneous
  Country: ES (occurrence: ES)
  Receive Date: 20240711
  Receipt Date: 20240725
  Transmission Date: 20241016
  Serious: Yes (Other)
  Sender: PFIZER
  Company Number: ES-MLMSERVICE-20240627-PI115363-00082-1

PATIENT
  Age: 2 Decade
  Sex: Female

DRUGS (2)
  1. CARBOPLATIN [Suspect]
     Active Substance: CARBOPLATIN
     Indication: Alveolar rhabdomyosarcoma
     Dosage: 560 MG/M2, 1X/DAY
  2. IRINOTECAN HYDROCHLORIDE [Suspect]
     Active Substance: IRINOTECAN HYDROCHLORIDE
     Indication: Alveolar rhabdomyosarcoma

REACTIONS (4)
  - Second primary malignancy [Unknown]
  - Acquired gene mutation [Unknown]
  - Acute myeloid leukaemia [Unknown]
  - Off label use [Unknown]
